FAERS Safety Report 9254497 (Version 3)
Quarter: 2013Q3

REPORT INFORMATION
  Report Type: Spontaneous
  Country: US (occurrence: US)
  Receive Date: 20130425
  Receipt Date: 20130716
  Transmission Date: 20140515
  Serious: Yes (Other)
  Sender: FDA-Public Use
  Company Number: US-ROXANE LABORATORIES, INC.-2013-RO-00540RO

PATIENT
  Age: 66 Year
  Sex: Female
  Weight: 59 kg

DRUGS (12)
  1. FLECAINIDE [Suspect]
     Indication: VENTRICULAR ARRHYTHMIA
     Dosage: 200 MG
     Dates: start: 200002
  2. LEVAQUIN [Suspect]
     Indication: DIVERTICULITIS
  3. CIPRO [Suspect]
     Indication: DIVERTICULUM
  4. SUDAFED [Suspect]
     Indication: INFLUENZA
  5. SYNTHROID [Concomitant]
     Indication: HYPOTHYROIDISM
     Dates: start: 19990611
  6. TOPAMAX [Concomitant]
     Indication: MIGRAINE
     Dates: start: 20050606
  7. PREMPRO [Concomitant]
     Indication: MENOPAUSE
     Dates: start: 2005
  8. PREMPRO [Concomitant]
     Indication: HOT FLUSH
  9. MAGNESIUM OXIDE [Concomitant]
     Dosage: 800 MG
  10. ASPIRIN [Concomitant]
     Dosage: 81 MG
  11. FIORICET [Concomitant]
  12. CALCIUM WITH VITAMIN D [Concomitant]

REACTIONS (2)
  - Ventricular arrhythmia [Recovered/Resolved]
  - Product quality issue [Unknown]
